FAERS Safety Report 4839344-8 (Version None)
Quarter: 2005Q4

REPORT INFORMATION
  Report Type: 
  Country: None (occurrence: None)
  Receive Date: 20051129
  Receipt Date: 20050117
  Transmission Date: 20060501
  Serious: No
  Sender: FDA-Public Use
  Company Number: 2005/00135

PATIENT
  Age: 38 Year
  Sex: Female
  Weight: 122 kg

DRUGS (4)
  1. BUPROPION HCL [Suspect]
     Dosage: 150MG PER DAY
     Route: 048
     Dates: start: 20050105, end: 20050106
  2. NICOTINE [Concomitant]
     Dosage: 1PAT PER DAY
     Route: 062
  3. TOPAMAX [Concomitant]
     Dosage: 25MG PER DAY
     Route: 048
     Dates: start: 20050105
  4. DARVOCET-N 100 [Concomitant]
     Route: 048

REACTIONS (4)
  - DRY MOUTH [None]
  - MIGRAINE [None]
  - PALPITATIONS [None]
  - TREMOR [None]
